FAERS Safety Report 13785877 (Version 1)
Quarter: 2017Q3

REPORT INFORMATION
  Report Type: Spontaneous
  Country: RU (occurrence: RU)
  Receive Date: 20170725
  Receipt Date: 20170725
  Transmission Date: 20171127
  Serious: Yes (Other)
  Sender: FDA-Public Use
  Company Number: RU-ASTRAZENECA-2017SE74238

PATIENT
  Age: 64 Year
  Sex: Male

DRUGS (6)
  1. ATORVASTATIN [Concomitant]
     Active Substance: ATORVASTATIN
  2. CARDIOMAGNYL [Concomitant]
     Active Substance: ASPIRIN\MAGNESIUM HYDROXIDE
  3. GLIMEPIRIDE. [Concomitant]
     Active Substance: GLIMEPIRIDE
     Indication: TYPE 2 DIABETES MELLITUS
  4. LORISTA [Concomitant]
     Active Substance: LOSARTAN POTASSIUM
  5. METFORMIN [Concomitant]
     Active Substance: METFORMIN HYDROCHLORIDE
     Indication: TYPE 2 DIABETES MELLITUS
     Dates: start: 201701
  6. BRILINTA [Suspect]
     Active Substance: TICAGRELOR
     Indication: INTRACARDIAC THROMBUS
     Route: 048
     Dates: start: 201612

REACTIONS (6)
  - Weight decreased [Recovered/Resolved]
  - Off label use [Not Recovered/Not Resolved]
  - Bradycardia [Recovered/Resolved]
  - Weight increased [Unknown]
  - Product use in unapproved indication [Not Recovered/Not Resolved]
  - Type 2 diabetes mellitus [Not Recovered/Not Resolved]

NARRATIVE: CASE EVENT DATE: 201612
